FAERS Safety Report 19464966 (Version 3)
Quarter: 2021Q3

REPORT INFORMATION
  Report Type: Spontaneous
  Country: DK (occurrence: DK)
  Receive Date: 20210627
  Receipt Date: 20210713
  Transmission Date: 20211014
  Serious: Yes (Life-Threatening, Hospitalization, Other)
  Sender: FDA-Public Use
  Company Number: DK-AUROBINDO-AUR-APL-2021-026308

PATIENT
  Age: 64 Year
  Sex: Female

DRUGS (2)
  1. METFORMIN AUROBINDO FILM?COATED TABLETS 1000MG [Suspect]
     Active Substance: METFORMIN HYDROCHLORIDE
     Indication: TYPE 2 DIABETES MELLITUS
     Dosage: STRENGTH: 1000 MG
     Route: 048
     Dates: start: 2015
  2. FURIX [FUROSEMIDE] [Suspect]
     Active Substance: FUROSEMIDE
     Indication: DIURETIC THERAPY
     Dosage: STRENGTH: 20 MG
     Route: 048
     Dates: start: 202007

REACTIONS (3)
  - Renal failure [Not Recovered/Not Resolved]
  - Depressed level of consciousness [Recovered/Resolved]
  - Lactic acidosis [Unknown]

NARRATIVE: CASE EVENT DATE: 20210522
